FAERS Safety Report 24328612 (Version 2)
Quarter: 2024Q3

REPORT INFORMATION
  Report Type: Spontaneous
  Country: FR (occurrence: NL)
  Receive Date: 20240917
  Receipt Date: 20240920
  Transmission Date: 20241016
  Serious: Yes (Other)
  Sender: ORGANON
  Company Number: NL-Daleco-2024-FR-000011

PATIENT
  Age: 74 Year
  Sex: Male
  Weight: 87 kg

DRUGS (9)
  1. LIPTRUZET [Suspect]
     Active Substance: ATORVASTATIN CALCIUM\EZETIMIBE
     Dosage: 1X IN THE EVENING (10/80)
  2. BISOPROLOL FUMARATE [Suspect]
     Active Substance: BISOPROLOL FUMARATE
     Dosage: 1 TABLET IN THE MORNING
  3. TRANYLCYPROMINE SULFATE [Suspect]
     Active Substance: TRANYLCYPROMINE SULFATE
     Indication: Depression
     Dosage: 30 MG (1.5 TABLETS) IN THE MORNING AND 30 MG (1.5 TABLETS) IN THE AFTERNOON
  4. TEGRETOL [Suspect]
     Active Substance: CARBAMAZEPINE
     Dosage: 1 TABLET IN THE MORNING AND 1.5 IN THE EVENING
  5. RAMIPRIL [Suspect]
     Active Substance: RAMIPRIL
     Dosage: 2.5 MG 1 TABLET IN THE MORNING
  6. CLOPIDOGREL [Suspect]
     Active Substance: CLOPIDOGREL BISULFATE
     Dosage: 1X IN THE MORNING UNTIL SEPTEMBER 2024
     Dates: end: 20240731
  7. ASPIRIN [Suspect]
     Active Substance: ASPIRIN
     Dosage: 1 TABLET NOON TIME
  8. VALSARTAN [Suspect]
     Active Substance: VALSARTAN
     Dosage: 1 TABLET IN THE MORNING AND IN THE EVENING
  9. PANTOPRAZOLE [Suspect]
     Active Substance: PANTOPRAZOLE
     Dosage: 1X IN THE EVENING

REACTIONS (9)
  - Transient ischaemic attack [Unknown]
  - Myocardial infarction [Recovered/Resolved with Sequelae]
  - Muscle spasms [Recovered/Resolved]
  - Asthenia [Recovering/Resolving]
  - Contusion [Not Recovered/Not Resolved]
  - Insomnia [Recovered/Resolved]
  - Blood pressure increased [Not Recovered/Not Resolved]
  - Contraindicated product administered [Not Recovered/Not Resolved]
  - Diet noncompliance [Unknown]

NARRATIVE: CASE EVENT DATE: 20030101
